FAERS Safety Report 16725624 (Version 6)
Quarter: 2020Q3

REPORT INFORMATION
  Report Type: Other
  Country: US (occurrence: US)
  Receive Date: 20190821
  Receipt Date: 20200806
  Transmission Date: 20201102
  Serious: Yes (Other)
  Sender: FDA-Public Use
  Company Number: US-ROCHE-2374550

PATIENT
  Age: 72 Year
  Sex: Male

DRUGS (3)
  1. OCREVUS [Suspect]
     Active Substance: OCRELIZUMAB
     Indication: RELAPSING-REMITTING MULTIPLE SCLEROSIS
     Dosage: NEXT DATES OF ADMINISTRATION: 27/JUN/2017, 01/FEB/2018, 20/FEB/2019
     Route: 065
     Dates: start: 20170613
  2. OCREVUS [Suspect]
     Active Substance: OCRELIZUMAB
     Dosage: DATE OF TREATMENT: 27/JUN/2017
     Route: 065
     Dates: start: 20170613, end: 20190220
  3. OCREVUS [Suspect]
     Active Substance: OCRELIZUMAB
     Dosage: 13/JUN/2019
     Route: 065
     Dates: start: 20180213

REACTIONS (5)
  - Hip fracture [Recovering/Resolving]
  - Constipation [Recovered/Resolved]
  - Urinary tract infection [Not Recovered/Not Resolved]
  - Fall [Unknown]
  - Thrombosis [Unknown]

NARRATIVE: CASE EVENT DATE: 20190621
